FAERS Safety Report 25802198 (Version 3)
Quarter: 2025Q3

REPORT INFORMATION
  Report Type: Spontaneous
  Country: CN (occurrence: CN)
  Receive Date: 20250915
  Receipt Date: 20250919
  Transmission Date: 20251021
  Serious: Yes (Life-Threatening, Hospitalization)
  Sender: MERCK SHARP & DOHME LLC
  Company Number: CN-009507513-2327717

PATIENT
  Age: 74 Year
  Sex: Male

DRUGS (4)
  1. PEMBROLIZUMAB [Suspect]
     Active Substance: PEMBROLIZUMAB
     Indication: Nasal cavity cancer
     Route: 041
     Dates: start: 20250804, end: 20250804
  2. PACLITAXEL [Suspect]
     Active Substance: PACLITAXEL
     Indication: Nasal cavity cancer
     Route: 041
     Dates: start: 20250804, end: 20250804
  3. SODIUM CHLORIDE [Concomitant]
     Active Substance: SODIUM CHLORIDE
     Route: 041
     Dates: start: 20250804, end: 20250804
  4. SODIUM CHLORIDE [Concomitant]
     Active Substance: SODIUM CHLORIDE
     Route: 041
     Dates: start: 20250804, end: 20250804

REACTIONS (8)
  - Acute kidney injury [Recovering/Resolving]
  - Cholecystitis acute [Recovering/Resolving]
  - Rash erythematous [Recovering/Resolving]
  - Thrombocytopenia [Recovering/Resolving]
  - Septic shock [Recovering/Resolving]
  - Hyperpyrexia [Unknown]
  - Product use issue [Unknown]
  - Multi-organ disorder [Unknown]

NARRATIVE: CASE EVENT DATE: 20250101
